FAERS Safety Report 18981523 (Version 1)
Quarter: 2021Q1

REPORT INFORMATION
  Report Type: Spontaneous
  Country: NL (occurrence: NL)
  Receive Date: 20210308
  Receipt Date: 20210308
  Transmission Date: 20210420
  Serious: Yes (Hospitalization, Other)
  Sender: FDA-Public Use
  Company Number: NL-NOVA LABORATORIES LIMITED-2107705

PATIENT
  Age: 3 Year
  Sex: Female

DRUGS (5)
  1. METHOTREXATE. [Suspect]
     Active Substance: METHOTREXATE
  2. VINCRISTINE [Suspect]
     Active Substance: VINCRISTINE
  3. LEUNASE (ASPARAGINASE) [Suspect]
     Active Substance: ASPARAGINASE
  4. PURIXAN [Suspect]
     Active Substance: MERCAPTOPURINE
  5. DEXAMETHASONE. [Suspect]
     Active Substance: DEXAMETHASONE
     Route: 050

REACTIONS (3)
  - Hepatic candidiasis [Unknown]
  - Pneumonia [Unknown]
  - Bone density decreased [Recovering/Resolving]
